FAERS Safety Report 11402393 (Version 1)
Quarter: 2015Q3

REPORT INFORMATION
  Report Type: Spontaneous
  Country: US (occurrence: US)
  Receive Date: 20150821
  Receipt Date: 20150821
  Transmission Date: 20151125
  Serious: No
  Sender: FDA-Public Use
  Company Number: US-ROCHE-1307492

PATIENT
  Sex: Female

DRUGS (3)
  1. INCIVEK [Suspect]
     Active Substance: TELAPREVIR
     Indication: CHRONIC HEPATITIS C
     Dosage: VERTEX PHARMACEUTICALS
     Route: 065
     Dates: start: 20130920
  2. RIBASPHERE RIBAPAK [Suspect]
     Active Substance: RIBAVIRIN
     Indication: CHRONIC HEPATITIS C
     Dosage: DIVIDED DOSE?KADMON BRAND
     Route: 048
     Dates: start: 20130920
  3. PEGASYS [Suspect]
     Active Substance: PEGINTERFERON ALFA-2A
     Indication: CHRONIC HEPATITIS C
     Route: 058
     Dates: start: 20130920

REACTIONS (6)
  - Ligament rupture [Unknown]
  - Generalised oedema [Unknown]
  - Dry mouth [Unknown]
  - Anaemia [Unknown]
  - Dizziness [Recovered/Resolved]
  - Weight increased [Unknown]
